FAERS Safety Report 9465510 (Version 2)
Quarter: 2013Q4

REPORT INFORMATION
  Report Type: Spontaneous
  Country: US (occurrence: US)
  Receive Date: 20130820
  Receipt Date: 20131118
  Transmission Date: 20140711
  Serious: Yes (Hospitalization, Other)
  Sender: FDA-Public Use
  Company Number: US-JNJFOC-20130803581

PATIENT
  Age: 48 Year
  Sex: Female
  Weight: 120.2 kg

DRUGS (5)
  1. PEPCID COMPLETE CHEWABLE TABLET BERRY [Suspect]
     Route: 048
  2. PEPCID COMPLETE CHEWABLE TABLET BERRY [Suspect]
     Indication: ANTACID THERAPY
     Route: 048
     Dates: start: 20130727, end: 20130801
  3. OPANA [Concomitant]
     Indication: PAIN
     Route: 065
  4. AMBIEN [Concomitant]
     Indication: SLEEP DISORDER THERAPY
     Route: 065
  5. BACLOFEN [Concomitant]
     Indication: MUSCLE RELAXANT THERAPY
     Route: 065

REACTIONS (9)
  - Infectious colitis [Unknown]
  - Oesophageal ulcer [Unknown]
  - Dehydration [Recovering/Resolving]
  - Malaise [Recovering/Resolving]
  - Chills [Recovering/Resolving]
  - Pyrexia [Recovering/Resolving]
  - Diarrhoea [Recovering/Resolving]
  - Product tampering [Unknown]
  - Nausea [Recovering/Resolving]
